FAERS Safety Report 5371339-0 (Version None)
Quarter: 2007Q2

REPORT INFORMATION
  Report Type: 
  Country: None (occurrence: None)
  Receive Date: 20070622
  Receipt Date: 20070611
  Transmission Date: 20071010
  Serious: Yes (Hospitalization)
  Sender: FDA-Public Use
  Company Number: 157461ISR

PATIENT
  Age: 68 Year
  Sex: Male

DRUGS (1)
  1. SIMVASTATIN [Suspect]
     Dosage: 20 MG (20 MG, 1 IN 1 D) ??

REACTIONS (17)
  - ACUTE CORONARY SYNDROME [None]
  - ANAEMIA [None]
  - ARTHRALGIA [None]
  - CARDIAC MURMUR [None]
  - CATHETER SEPSIS [None]
  - CONTUSION [None]
  - DRUG TOXICITY [None]
  - HEADACHE [None]
  - JOINT EFFUSION [None]
  - JOINT SWELLING [None]
  - MOUTH HAEMORRHAGE [None]
  - NAUSEA [None]
  - PETECHIAE [None]
  - PLATELET DESTRUCTION INCREASED [None]
  - STAPHYLOCOCCAL SEPSIS [None]
  - THROMBOTIC THROMBOCYTOPENIC PURPURA [None]
  - TROPONIN T INCREASED [None]
